FAERS Safety Report 4666288-7 (Version None)
Quarter: 2005Q2

REPORT INFORMATION
  Report Type: 
  Country: None (occurrence: None)
  Receive Date: 20050518
  Receipt Date: 20050511
  Transmission Date: 20051028
  Serious: Yes (Other)
  Sender: FDA-Public Use
  Company Number: CIP05001122

PATIENT
  Age: 91 Year
  Sex: Female

DRUGS (5)
  1. ACTONEL [Suspect]
     Indication: OSTEOPOROSIS
     Dosage: 35 MG ONCE WEEKLY, ORAL
     Route: 048
  2. CALCIMAGON-D3                  (COLECALCIFEROL, CALCIUM CARBONATE) [Concomitant]
  3. OXAZEPAM [Concomitant]
  4. VITALUX PLUS [Concomitant]
  5. ORTHO-GYNEST D                  (ESTRIOL) [Concomitant]

REACTIONS (1)
  - UVEITIS [None]
